FAERS Safety Report 20883543 (Version 1)
Quarter: 2022Q2

REPORT INFORMATION
  Report Type: Spontaneous
  Country: US (occurrence: None)
  Receive Date: 20220526
  Receipt Date: 20220526
  Transmission Date: 20220720
  Serious: No
  Sender: FDA-Public Use
  Company Number: None

PATIENT
  Age: 58 Year
  Sex: Female

DRUGS (1)
  1. HUMIRA [Suspect]
     Active Substance: ADALIMUMAB
     Indication: Ankylosing spondylitis
     Dosage: OTHER FREQUENCY : BID ON SAME DAY;?
     Route: 058
     Dates: start: 202205

REACTIONS (4)
  - Headache [None]
  - Road traffic accident [None]
  - Fracture [None]
  - Medical device implantation [None]
